FAERS Safety Report 4975408-6 (Version None)
Quarter: 2006Q2

REPORT INFORMATION
  Report Type: 
  Country: None (occurrence: None)
  Receive Date: 20060417
  Receipt Date: 20060417
  Transmission Date: 20061013
  Serious: Yes (Hospitalization, Other)
  Sender: FDA-Public Use
  Company Number: None

PATIENT
  Sex: Female
  Weight: 85.2 kg

DRUGS (2)
  1. CARBOPLATIN [Suspect]
     Indication: NON-SMALL CELL LUNG CANCER
     Dosage: 3528 MG
     Dates: start: 20060117, end: 20060321
  2. ALIMTA [Suspect]
     Dosage: 3935 MG
     Dates: start: 20060117, end: 20060321

REACTIONS (7)
  - EXTRAPYRAMIDAL DISORDER [None]
  - FACIAL PALSY [None]
  - HYPOCALCAEMIA [None]
  - MUSCLE CONTRACTIONS INVOLUNTARY [None]
  - PARAESTHESIA [None]
  - SENSORY LOSS [None]
  - TETANY [None]
